FAERS Safety Report 5223346-6 (Version None)
Quarter: 2007Q1

REPORT INFORMATION
  Report Type: 
  Country: None (occurrence: None)
  Receive Date: 20070124
  Receipt Date: 20070112
  Transmission Date: 20070707
  Serious: Yes (Other)
  Sender: FDA-Public Use
  Company Number: 233906

PATIENT
  Age: 49 Year
  Sex: Female
  Weight: 64 kg

DRUGS (6)
  1. MABTHERA (RITUXIMAB) CONC FOR SOLUTION FOR INFUSION [Suspect]
     Indication: IDIOPATHIC THROMBOCYTOPENIC PURPURA
     Dosage: 600 MG, 1/WEEK, INTRAVENOUS
     Route: 042
     Dates: start: 20061213, end: 20061213
  2. DEXAMETHASONE TAB [Suspect]
     Indication: IDIOPATHIC THROMBOCYTOPENIC PURPURA
     Dosage: 40 MG, QD
     Dates: start: 20060915, end: 20061210
  3. MABTHERA (RITUXIMAB) CONC FOR SOLUTION FOR INFUSION [Suspect]
  4. METHYLPREDNISOLONE [Suspect]
  5. CHLORPHENIRAMINE MALEATE [Concomitant]
  6. EUTIROX (LEOVTHYROXINE SODIUM) [Concomitant]

REACTIONS (10)
  - CONVULSION [None]
  - FAECAL INCONTINENCE [None]
  - INFUSION RELATED REACTION [None]
  - LOSS OF CONSCIOUSNESS [None]
  - MALAISE [None]
  - NAUSEA [None]
  - ORAL SOFT TISSUE DISORDER [None]
  - PULSE ABNORMAL [None]
  - TRISMUS [None]
  - URINARY INCONTINENCE [None]
